FAERS Safety Report 23624602 (Version 3)
Quarter: 2024Q2

REPORT INFORMATION
  Report Type: Report from Study
  Country: CO (occurrence: CO)
  Receive Date: 20240313
  Receipt Date: 20240529
  Transmission Date: 20240716
  Serious: Yes (Hospitalization, Other)
  Sender: FDA-Public Use
  Company Number: CO-UCBSA-2024011993

PATIENT
  Age: 56 Year
  Sex: Female
  Weight: 48 kg

DRUGS (1)
  1. CERTOLIZUMAB PEGOL [Suspect]
     Active Substance: CERTOLIZUMAB PEGOL
     Indication: Rheumatoid arthritis
     Dosage: 400 MILLIGRAM, EV 4 WEEKS
     Route: 058
     Dates: start: 20181215, end: 20231102

REACTIONS (10)
  - Pneumonia [Recovered/Resolved]
  - Anaemia [Recovering/Resolving]
  - Intraocular lens implant [Recovered/Resolved]
  - Eye operation [Recovering/Resolving]
  - Eye pruritus [Recovered/Resolved]
  - Eye irritation [Recovered/Resolved]
  - Mydriasis [Recovered/Resolved]
  - Therapy interrupted [Unknown]
  - Insurance issue [Unknown]
  - Off label use [Unknown]

NARRATIVE: CASE EVENT DATE: 20181215
